FAERS Safety Report 7967230-3 (Version None)
Quarter: 2011Q4

REPORT INFORMATION
  Report Type: 
  Country: None (occurrence: None)
  Receive Date: 20111206
  Receipt Date: 20111129
  Transmission Date: 20120403
  Serious: Yes (Other)
  Sender: FDA-Public Use
  Company Number: AUR-APL-2011-03995

PATIENT
  Age: 89 Year
  Sex: Female
  Weight: 74.83 kg

DRUGS (6)
  1. METOPROLOL TARTRATE [Suspect]
     Indication: HYPERTENSION
     Dosage: 50 MG, 1 D
  2. ACETAMINOPHEN [Suspect]
     Indication: ARTHRITIS
     Dosage: 2600 MG (650  MG, 4 IN 1 D), ORAL
     Route: 048
     Dates: start: 20110101
  3. NIFEDIPINE [Concomitant]
  4. CELEBREX [Suspect]
     Indication: ARTHRITIS
     Dosage: ORAL
     Route: 048
     Dates: end: 20110101
  5. AROMASIN [Concomitant]
  6. LOVASTATIN [Concomitant]

REACTIONS (6)
  - HYPOTENSION [None]
  - SYNCOPE [None]
  - MUSCULAR WEAKNESS [None]
  - DRUG INEFFECTIVE [None]
  - ARTHRALGIA [None]
  - HYPERTENSION [None]
